FAERS Safety Report 5716872-4 (Version None)
Quarter: 2008Q2

REPORT INFORMATION
  Report Type: 
  Country: None (occurrence: None)
  Receive Date: 20080424
  Receipt Date: 20080411
  Transmission Date: 20081010
  Serious: Yes (Other)
  Sender: FDA-Public Use
  Company Number: GB-AMGEN-UK249997

PATIENT
  Sex: Male

DRUGS (18)
  1. PANITUMUMAB [Suspect]
     Indication: COLORECTAL CANCER
     Route: 042
     Dates: start: 20070118
  2. OXALIPLATIN [Suspect]
  3. LEUCOVORIN CALCIUM [Suspect]
  4. FLUOROURACIL [Suspect]
  5. AMLODIPINE [Concomitant]
     Route: 048
     Dates: start: 20060101, end: 20070430
  6. NOVOLOG MIX 70/30 [Concomitant]
     Route: 058
     Dates: start: 20070303, end: 20070429
  7. TETRACYCLINE [Concomitant]
     Dates: start: 20070127, end: 20070518
  8. AMOXICILLIN [Concomitant]
     Route: 048
     Dates: start: 20070126, end: 20070127
  9. FLOXACILLIN SODIUM [Concomitant]
     Route: 048
     Dates: start: 20070126, end: 20070127
  10. METFORMIN HCL [Concomitant]
     Route: 048
     Dates: start: 20070222, end: 20070228
  11. DALTEPARIN SODIUM [Concomitant]
     Route: 058
     Dates: start: 20070227, end: 20070328
  12. FLUCONAZOLE [Concomitant]
     Route: 048
     Dates: start: 20070227, end: 20070307
  13. ACTRAPID HUMAN [Concomitant]
     Route: 058
     Dates: start: 20070307, end: 20070308
  14. METRONIDAZOLE HCL [Concomitant]
     Route: 048
     Dates: start: 20070302, end: 20070306
  15. DEXAMETHASONE TAB [Concomitant]
     Route: 048
     Dates: start: 20070118, end: 20070422
  16. CALAMINE LOTION [Concomitant]
     Route: 061
  17. TRAMADOL HCL [Concomitant]
     Route: 048
     Dates: start: 20061128, end: 20070410
  18. PARACETAMOL [Concomitant]
     Dates: start: 20061128, end: 20070410

REACTIONS (1)
  - PULMONARY EMBOLISM [None]
